FAERS Safety Report 4576106-3 (Version None)
Quarter: 2005Q1

REPORT INFORMATION
  Report Type: 
  Country: None (occurrence: None)
  Receive Date: 20050204
  Receipt Date: 20050119
  Transmission Date: 20050727
  Serious: Yes (Other)
  Sender: FDA-Public Use
  Company Number: S05-UKI-00220-01

PATIENT
  Age: 28 Year
  Sex: Female

DRUGS (1)
  1. ESCITALOPRAM OXALATE [Suspect]
     Indication: DEPRESSION
     Dosage: 10 MG QD PO
     Route: 048
     Dates: start: 20041122, end: 20041221

REACTIONS (3)
  - SELF INJURIOUS BEHAVIOUR [None]
  - SELF-INJURIOUS IDEATION [None]
  - SUICIDAL IDEATION [None]
